FAERS Safety Report 7749237-4 (Version None)
Quarter: 2011Q3

REPORT INFORMATION
  Report Type: 
  Country: None (occurrence: None)
  Receive Date: 20110914
  Receipt Date: 20110908
  Transmission Date: 20111222
  Serious: Yes (Life-Threatening, Hospitalization)
  Sender: FDA-Public Use
  Company Number: DK-PFIZER INC-2011211735

PATIENT
  Age: 70 Year
  Sex: Female
  Weight: 52 kg

DRUGS (4)
  1. FEMANOR [Concomitant]
     Dosage: STRENGHT: 1+2 MG
  2. ENALAPRIL MALEATE [Concomitant]
  3. METFORMIN [Concomitant]
  4. SUTENT [Suspect]
     Indication: RENAL CANCER METASTATIC
     Dosage: DOSE: 50 MG DAILY FOR 4 WEEKS, 14 DAYS PAUSE, STRENGTH 25 MG
     Route: 048
     Dates: start: 20110720, end: 20110814

REACTIONS (2)
  - COMA [None]
  - ACUTE DISSEMINATED ENCEPHALOMYELITIS [None]
